FAERS Safety Report 13344532 (Version 2)
Quarter: 2017Q2

REPORT INFORMATION
  Report Type: Spontaneous
  Country: BR (occurrence: BR)
  Receive Date: 20170317
  Receipt Date: 20170407
  Transmission Date: 20170830
  Serious: Yes (Death, Life-Threatening, Hospitalization, Other)
  Sender: FDA-Public Use
  Company Number: BR-ASTRAZENECA-2017SE26970

PATIENT
  Age: 75 Year
  Sex: Male

DRUGS (2)
  1. SITAGLIPTIN [Concomitant]
     Active Substance: SITAGLIPTIN
     Indication: TYPE 2 DIABETES MELLITUS
  2. XIGDUO XR [Suspect]
     Active Substance: DAPAGLIFLOZIN PROPANEDIOL\METFORMIN HYDROCHLORIDE
     Indication: TYPE 2 DIABETES MELLITUS
     Route: 048
     Dates: start: 201702

REACTIONS (5)
  - Ketoacidosis [Recovered/Resolved]
  - Cardio-respiratory arrest [Unknown]
  - Renal failure [Fatal]
  - Blood potassium increased [Recovered/Resolved]
  - Urinary tract infection [Fatal]

NARRATIVE: CASE EVENT DATE: 2017
